FAERS Safety Report 23852727 (Version 1)
Quarter: 2024Q2

REPORT INFORMATION
  Report Type: Spontaneous
  Country: ES (occurrence: ES)
  Receive Date: 20240514
  Receipt Date: 20240514
  Transmission Date: 20240716
  Serious: Yes (Other)
  Sender: FDA-Public Use
  Company Number: ES-AUROBINDO-AUR-APL-2024-021954

PATIENT
  Age: 55 Year
  Sex: Male

DRUGS (6)
  1. CARBOPLATIN [Suspect]
     Active Substance: CARBOPLATIN
     Indication: Chemotherapy
     Dosage: UNK
     Route: 065
  2. PEMETREXED [Suspect]
     Active Substance: PEMETREXED
     Indication: Chemotherapy
     Dosage: 175 MILLIGRAM/SQ. METER, EVERY 3 WEEKS
     Route: 065
  3. FOLIC ACID [Suspect]
     Active Substance: FOLIC ACID
     Indication: Chemotherapy
     Dosage: UNK (FOR TWO CYCLES)
     Route: 065
  4. IPILIMUMAB [Suspect]
     Active Substance: IPILIMUMAB
     Indication: Chemotherapy
     Dosage: 1 MILLIGRAM/KILOGRAM, EVERY 6 WEEKS
     Route: 065
  5. NIVOLUMAB [Suspect]
     Active Substance: NIVOLUMAB
     Indication: Chemotherapy
     Dosage: 360 MILLIGRAM, EVERY 3 WEEKS
     Route: 065
  6. VITAMIN B12 [Suspect]
     Active Substance: CYANOCOBALAMIN
     Indication: Chemotherapy
     Dosage: UNK (FOR TWO CYCLES)
     Route: 065

REACTIONS (1)
  - Therapy partial responder [Unknown]
